FAERS Safety Report 4629594-8 (Version None)
Quarter: 2005Q1

REPORT INFORMATION
  Report Type: 
  Country: None (occurrence: None)
  Receive Date: 20050331
  Receipt Date: 20050322
  Transmission Date: 20050727
  Serious: Yes (Hospitalization)
  Sender: FDA-Public Use
  Company Number: 2005-00080

PATIENT
  Age: 71 Year
  Sex: Male

DRUGS (1)
  1. IMMUCYST (BCG - IT (CONNAUGHT)) [Suspect]
     Indication: BLADDER CANCER
     Dosage: I.VES., BLADDER
     Dates: start: 20020620

REACTIONS (12)
  - BOVINE TUBERCULOSIS [None]
  - DUODENAL ULCER [None]
  - DYSURIA [None]
  - GENERAL PHYSICAL HEALTH DETERIORATION [None]
  - GRANULOMATOUS LIVER DISEASE [None]
  - HAEMATURIA [None]
  - HYPERSENSITIVITY [None]
  - PAIN [None]
  - PANCYTOPENIA [None]
  - PROCEDURAL COMPLICATION [None]
  - STOMACH GRANULOMA [None]
  - WHITE BLOOD CELLS URINE POSITIVE [None]
